FAERS Safety Report 8082757-4 (Version None)
Quarter: 2012Q1

REPORT INFORMATION
  Report Type: 
  Country: None (occurrence: None)
  Receive Date: 20120127
  Receipt Date: 20110209
  Transmission Date: 20120608
  Serious: No
  Sender: FDA-Public Use
  Company Number: US-ABBOTT-11P-163-0703847-00

PATIENT
  Age: 22 Year
  Sex: Male

DRUGS (5)
  1. VIT C [Concomitant]
     Indication: PRODUCT USED FOR UNKNOWN INDICATION
  2. MULTI-VITAMIN [Concomitant]
     Indication: PRODUCT USED FOR UNKNOWN INDICATION
  3. ASACOL [Concomitant]
     Indication: PRODUCT USED FOR UNKNOWN INDICATION
     Dosage: 4.8 GRAMS DAILY
  4. HUMIRA [Suspect]
     Indication: CROHN'S DISEASE
     Dates: start: 20101120
  5. OMEPRAZOLE [Concomitant]
     Indication: PRODUCT USED FOR UNKNOWN INDICATION
     Dosage: 20 MG DAILY PRN

REACTIONS (4)
  - RHINORRHOEA [None]
  - PYREXIA [None]
  - FREQUENT BOWEL MOVEMENTS [None]
  - SINUS CONGESTION [None]
